FAERS Safety Report 7278079-1 (Version None)
Quarter: 2011Q1

REPORT INFORMATION
  Report Type: 
  Country: None (occurrence: None)
  Receive Date: 20110207
  Receipt Date: 20110202
  Transmission Date: 20110831
  Serious: Yes (Hospitalization, Other)
  Sender: FDA-Public Use
  Company Number: IT-ELI_LILLY_AND_COMPANY-IT201012004919

PATIENT
  Sex: Male
  Weight: 108 kg

DRUGS (4)
  1. CABERGOLINE [Concomitant]
     Indication: HYPERPROLACTINAEMIA
     Dates: start: 20040929
  2. LEVOTHYROXINE [Concomitant]
     Indication: HYPOTHYROIDISM
     Dates: start: 20030611
  3. SOMATROPIN [Suspect]
     Indication: GROWTH HORMONE DEFICIENCY
     Dosage: 0.3 MG, DAILY (1/D)
     Route: 058
     Dates: start: 20040501
  4. TESTOSTERONE [Concomitant]
     Indication: HYPOGONADISM
     Dates: start: 20010620

REACTIONS (3)
  - THROMBOCYTOPENIA [None]
  - ACUTE MYELOID LEUKAEMIA [None]
  - NEUTROPENIA [None]
